FAERS Safety Report 13650086 (Version 3)
Quarter: 2018Q4

REPORT INFORMATION
  Report Type: Spontaneous
  Country: US (occurrence: US)
  Receive Date: 20170614
  Receipt Date: 20181228
  Transmission Date: 20190204
  Serious: No
  Sender: FDA-Public Use
  Company Number: US-PFIZER INC-2017255724

PATIENT
  Age: 67 Year
  Sex: Female

DRUGS (6)
  1. PSEUDOEPHEDRIN [Suspect]
     Active Substance: PSEUDOEPHEDRINE
     Dosage: UNK
  2. DOXYLAMINE [Suspect]
     Active Substance: DOXYLAMINE
     Dosage: UNK
  3. ACETAM [Suspect]
     Active Substance: ACETAMINOPHEN
     Dosage: UNK
  4. DIPHENHYDRAMINE HCL [Suspect]
     Active Substance: DIPHENHYDRAMINE HYDROCHLORIDE
     Dosage: UNK
  5. LOSARTAN. [Suspect]
     Active Substance: LOSARTAN
     Dosage: UNK
  6. BENADRYL [Suspect]
     Active Substance: DIPHENHYDRAMINE HYDROCHLORIDE
     Dosage: UNK

REACTIONS (1)
  - Drug hypersensitivity [Unknown]
